FAERS Safety Report 5743134-1 (Version None)
Quarter: 2008Q2

REPORT INFORMATION
  Report Type: 
  Country: None (occurrence: None)
  Receive Date: 20080519
  Receipt Date: 20080508
  Transmission Date: 20081010
  Serious: Yes (Disabling, Other)
  Sender: FDA-Public Use
  Company Number: US-ELI_LILLY_AND_COMPANY-US200805001568

PATIENT
  Sex: Female

DRUGS (1)
  1. EVISTA [Suspect]
     Indication: MENOPAUSE
     Dosage: 60 MG, DAILY (1/D)
     Dates: end: 20080508

REACTIONS (1)
  - BLINDNESS UNILATERAL [None]
